FAERS Safety Report 6212339-8 (Version None)
Quarter: 2009Q2

REPORT INFORMATION
  Report Type: 
  Country: None (occurrence: None)
  Receive Date: 20090529
  Receipt Date: 20090518
  Transmission Date: 20091009
  Serious: Yes (Death)
  Sender: FDA-Public Use
  Company Number: VISP-NO-0905S-0266

PATIENT
  Age: 74 Year
  Sex: Male

DRUGS (4)
  1. VISIPAQUE [Suspect]
     Indication: CHEST PAIN
     Dosage: SINGLE DOSE, I.A.
     Dates: start: 20081205, end: 20081205
  2. ASPIRIN [Concomitant]
  3. TIROFIBAN [Concomitant]
  4. HEPARIN [Concomitant]

REACTIONS (5)
  - ACUTE PULMONARY OEDEMA [None]
  - CARDIO-RESPIRATORY ARREST [None]
  - CHEST PAIN [None]
  - DYSPNOEA [None]
  - ELECTROCARDIOGRAM ST SEGMENT DEPRESSION [None]
